FAERS Safety Report 17297771 (Version 2)
Quarter: 2021Q2

REPORT INFORMATION
  Report Type: Report from Study
  Country: CN (occurrence: CN)
  Receive Date: 20200121
  Receipt Date: 20210427
  Transmission Date: 20210716
  Serious: Yes (Other)
  Sender: FDA-Public Use
  Company Number: CN-BRISTOL-MYERS SQUIBB COMPANY-BMS-2020-002981

PATIENT
  Age: 76 Year
  Sex: Male

DRUGS (1)
  1. NIVOLUMAB [Suspect]
     Active Substance: NIVOLUMAB
     Indication: NON-SMALL CELL LUNG CANCER
     Dosage: 140 MILLIGRAM, Q4WK
     Route: 041
     Dates: start: 20190801

REACTIONS (9)
  - Off label use [Unknown]
  - Bronchitis chronic [Unknown]
  - Lung disorder [Unknown]
  - Diabetes mellitus [Unknown]
  - Dyspnoea [Unknown]
  - Movement disorder [Unknown]
  - Pneumonia [Unknown]
  - Fatigue [Unknown]
  - Asthma [Unknown]

NARRATIVE: CASE EVENT DATE: 201910
